FAERS Safety Report 21242932 (Version 1)
Quarter: 2022Q3

REPORT INFORMATION
  Report Type: Spontaneous
  Country: US (occurrence: US)
  Receive Date: 20220823
  Receipt Date: 20220823
  Transmission Date: 20221026
  Serious: Yes (Other)
  Sender: FDA-Public Use
  Company Number: US-PFIZER INC-202201074814

PATIENT
  Age: 33 Year
  Sex: Female

DRUGS (5)
  1. PAXLOVID [Suspect]
     Active Substance: NIRMATRELVIR\RITONAVIR
     Indication: COVID-19 treatment
     Dosage: UNK
     Dates: start: 20220806, end: 20220809
  2. VENLAFAXINE [Concomitant]
     Active Substance: VENLAFAXINE HYDROCHLORIDE
     Dosage: UNK
     Dates: start: 20210901, end: 20220806
  3. PHENTERMINE [Concomitant]
     Active Substance: PHENTERMINE
     Dosage: UNK
     Dates: start: 20220301, end: 20220806
  4. LEVOTHYROXINE [Concomitant]
     Active Substance: LEVOTHYROXINE
     Dosage: UNK
     Dates: start: 20201101, end: 20220821
  5. THYRONINE [Concomitant]
     Dosage: UNK
     Dates: start: 20201101, end: 20220821

REACTIONS (10)
  - Suicidal ideation [Recovered/Resolved]
  - Incorrect product administration duration [Unknown]
  - Depression [Recovered/Resolved]
  - Depressed mood [Recovered/Resolved]
  - Mood swings [Recovered/Resolved]
  - Decreased interest [Recovered/Resolved]
  - Self-consciousness [Recovered/Resolved]
  - Breath odour [Recovered/Resolved]
  - Tongue disorder [Recovered/Resolved]
  - Oral discomfort [Recovered/Resolved]

NARRATIVE: CASE EVENT DATE: 20220801
